FAERS Safety Report 8579561-7 (Version None)
Quarter: 2012Q3

REPORT INFORMATION
  Report Type: 
  Country: None (occurrence: None)
  Receive Date: 20120808
  Receipt Date: 20120806
  Transmission Date: 20120928
  Serious: Yes (Other)
  Sender: FDA-Public Use
  Company Number: PHHY2012BR056273

PATIENT
  Sex: Female

DRUGS (15)
  1. VITAMIN D [Concomitant]
     Indication: VITAMIN D DEFICIENCY
     Dosage: 25 DROPS 1 TIME DAILY
  2. TEGRETOL [Suspect]
     Indication: NERVOUSNESS
     Dosage: HALF TABLET (200MG) IN THE MORNING AND A 1 TABLET (400MG) AT NIGHT
     Route: 048
  3. TOPIRAMATE [Concomitant]
     Indication: HEADACHE
  4. SIMVASTATIN [Concomitant]
     Indication: BLOOD CHOLESTEROL INCREASED
     Dosage: 1 TABLET AT NIGHT
     Route: 048
  5. ASPIRIN [Concomitant]
     Dosage: 1 TABLET DAILY, AFTER THE LUNCH
     Route: 048
  6. PAROXETINE [Concomitant]
     Indication: DEPRESSION
     Dosage: 1 TABLET IN THE MORNING AFTER THE BREAKFAST
     Route: 048
  7. TOPIRAMATE [Concomitant]
     Indication: CONVULSION
     Dosage: 3 TABLETS IN THE MORNING AND 1 TABLET AT NIGHT
     Route: 048
  8. GINKGO BILOBA [Concomitant]
     Dosage: 1 TABLET IN THE BREAKFAST AND 1 TABLET AFTER THE DINNER
     Route: 048
  9. ENDOFOLIN [Concomitant]
     Dosage: 1 TABLET DAILY
     Route: 048
  10. METFORMIN HYDROCHLORIDE [Concomitant]
     Indication: DIABETES MELLITUS
     Dosage: TABLET AFTER THE BREAKFAST AND 1 TABLET IN THE AFTERNOON
     Route: 048
  11. ENALAPRIL MALEATE [Concomitant]
     Indication: HYPERTENSION
     Dosage: 1 TABLET IN THE MORNING AND 1 TABLET IN THE AFTERNOON
     Route: 048
  12. LEVOTHYROXINE SODIUM [Concomitant]
     Indication: THYROID DISORDER
     Dosage: 1 TABLET IN THE MORNING
     Route: 048
  13. DROSPIRENONE AND ETHINYL ESTRADIOL [Concomitant]
     Indication: HORMONE REPLACEMENT THERAPY
     Dosage: 1 TABLET AT NIGHT
     Route: 048
  14. CIPROFIBRATE [Concomitant]
     Indication: BLOOD TRIGLYCERIDES INCREASED
     Dosage: 1 TABLET IN THE MORNING ON THE BREAKFAST
     Route: 048
  15. DESMOPRESSIN ACETATE (DDAVP) [Concomitant]
     Indication: DIABETES INSIPIDUS
     Dosage: 3 TIMES DAILY
     Route: 045

REACTIONS (6)
  - AGGRESSION [None]
  - AMENORRHOEA [None]
  - OBESITY [None]
  - BLINDNESS UNILATERAL [None]
  - VISUAL ACUITY REDUCED [None]
  - DIABETES INSIPIDUS [None]
